FAERS Safety Report 4777706-8 (Version None)
Quarter: 2005Q3

REPORT INFORMATION
  Report Type: 
  Country: None (occurrence: None)
  Receive Date: 20050921
  Receipt Date: 20050907
  Transmission Date: 20060218
  Serious: Yes (Other)
  Sender: FDA-Public Use
  Company Number: US_0509121806

PATIENT
  Sex: Male
  Weight: 77 kg

DRUGS (2)
  1. ZYPREXA [Suspect]
     Dosage: 5 MG DAY
     Dates: start: 20031204, end: 20040601
  2. ARIPIPRAZOLE [Concomitant]

REACTIONS (8)
  - BLINDNESS UNILATERAL [None]
  - BRAIN OEDEMA [None]
  - HYPERPHAGIA [None]
  - OBESITY [None]
  - POLYDIPSIA [None]
  - POLYURIA [None]
  - VISION BLURRED [None]
  - VISUAL DISTURBANCE [None]
